FAERS Safety Report 15404153 (Version 3)
Quarter: 2019Q1

REPORT INFORMATION
  Report Type: Spontaneous
  Country: JP (occurrence: JP)
  Receive Date: 20180919
  Receipt Date: 20190301
  Transmission Date: 20190417
  Serious: Yes (Death)
  Sender: FDA-Public Use
  Company Number: JP-PURDUE PHARMA-GBR-2018-0056713

PATIENT
  Age: 71 Year
  Sex: Male

DRUGS (16)
  1. ASPARTATE CALCIUM [Concomitant]
     Active Substance: CALCIUM ASPARTATE
     Indication: HYPOCALCAEMIA
     Dosage: 600 MG, DAILY
     Route: 048
  2. OXINORM (OXYCODONE HYDROCHLORIDE) [Suspect]
     Active Substance: OXYCODONE HYDROCHLORIDE
     Dosage: 7.5 MG, DAILY
     Route: 065
     Dates: start: 20170811, end: 20170812
  3. CALONAL [Concomitant]
     Active Substance: ACETAMINOPHEN
     Indication: CANCER PAIN
     Dosage: 1500 MG, DAILY
     Route: 048
     Dates: start: 20170804
  4. AMITIZA [Concomitant]
     Active Substance: LUBIPROSTONE
     Indication: CONSTIPATION
     Dosage: 48 MCG, DAILY
     Route: 048
     Dates: start: 20170803
  5. OXINORM (OXYCODONE HYDROCHLORIDE) [Suspect]
     Active Substance: OXYCODONE HYDROCHLORIDE
     Dosage: 5 MG, DAILY
     Route: 065
     Dates: start: 20170810, end: 20170810
  6. OXINORM (OXYCODONE HYDROCHLORIDE) [Suspect]
     Active Substance: OXYCODONE HYDROCHLORIDE
     Dosage: 15 MG, DAILY
     Route: 065
     Dates: start: 20170804, end: 20170804
  7. OXINORM (OXYCODONE HYDROCHLORIDE) [Suspect]
     Active Substance: OXYCODONE HYDROCHLORIDE
     Dosage: 2.5 MG, DAILY
     Route: 065
     Dates: start: 20170805, end: 20170806
  8. OXYCODONE HYDROCHLORIDE. [Concomitant]
     Active Substance: OXYCODONE HYDROCHLORIDE
     Indication: CANCER PAIN
     Dosage: 10 MG, DAILY
     Route: 048
     Dates: start: 20170804, end: 20170822
  9. THYRADIN S [Concomitant]
     Active Substance: LEVOTHYROXINE SODIUM
     Indication: HYPOTHYROIDISM
     Dosage: 200 MCG, DAILY
     Route: 048
  10. OXINORM (OXYCODONE HYDROCHLORIDE) [Suspect]
     Active Substance: OXYCODONE HYDROCHLORIDE
     Indication: CANCER PAIN
     Dosage: 2.5 MG, DAILY
     Route: 065
     Dates: start: 20170815, end: 20170815
  11. OXINORM (OXYCODONE HYDROCHLORIDE) [Suspect]
     Active Substance: OXYCODONE HYDROCHLORIDE
     Dosage: 17.5 MG, DAILY
     Route: 065
     Dates: start: 20170813, end: 20170813
  12. OXINORM (OXYCODONE HYDROCHLORIDE) [Suspect]
     Active Substance: OXYCODONE HYDROCHLORIDE
     Dosage: 5 MG, DAILY
     Route: 065
     Dates: start: 20170808, end: 20170808
  13. WARKMIN [Concomitant]
     Active Substance: ALFACALCIDOL
     Indication: HYPOCALCAEMIA
     Dosage: 2 MCG, DAILY
     Route: 048
  14. OXINORM (OXYCODONE HYDROCHLORIDE) [Suspect]
     Active Substance: OXYCODONE HYDROCHLORIDE
     Dosage: 7.5 MG, DAILY
     Route: 065
     Dates: start: 20170803, end: 20170803
  15. OXINORM (OXYCODONE HYDROCHLORIDE) [Suspect]
     Active Substance: OXYCODONE HYDROCHLORIDE
     Dosage: 5 MG, DAILY
     Route: 065
     Dates: start: 20170814, end: 20170814
  16. MAGMITT [Concomitant]
     Active Substance: MAGNESIUM OXIDE
     Indication: CONSTIPATION
     Dosage: 990 MG, DAILY

REACTIONS (3)
  - Inadequate analgesia [Unknown]
  - Papillary thyroid cancer [Fatal]
  - Constipation [Unknown]

NARRATIVE: CASE EVENT DATE: 20170812
